FAERS Safety Report 4450439-3 (Version None)
Quarter: 2004Q3

REPORT INFORMATION
  Report Type: 
  Country: None (occurrence: None)
  Receive Date: 20040802
  Receipt Date: 20040121
  Transmission Date: 20050211
  Serious: Yes (Hospitalization, Other)
  Sender: FDA-Public Use
  Company Number: US-SHR-04-020035

PATIENT
  Age: 55 Year
  Sex: Female
  Weight: 76.2 kg

DRUGS (1)
  1. MAGNEVIST [Suspect]
     Indication: NUCLEAR MAGNETIC RESONANCE IMAGING
     Dosage: 30 M1, 1DOSE, INTRAVENOUS
     Route: 042
     Dates: start: 20040114, end: 20040114

REACTIONS (6)
  - ANAPHYLACTIC SHOCK [None]
  - DYSGEUSIA [None]
  - DYSPNOEA [None]
  - HYPERTENSION [None]
  - THROAT TIGHTNESS [None]
  - WHEEZING [None]
